FAERS Safety Report 7157685-9 (Version None)
Quarter: 2010Q4

REPORT INFORMATION
  Report Type: 
  Country: None (occurrence: None)
  Receive Date: 20101214
  Receipt Date: 20100611
  Transmission Date: 20110411
  Serious: No
  Sender: FDA-Public Use
  Company Number: US-ASTRAZENECA-2010SE11310

PATIENT
  Age: 61 Year
  Sex: Female
  Weight: 74.8 kg

DRUGS (1)
  1. CRESTOR [Suspect]
     Indication: BLOOD CHOLESTEROL INCREASED
     Route: 048
     Dates: start: 20100215

REACTIONS (5)
  - DIZZINESS [None]
  - INFLAMMATORY BOWEL DISEASE [None]
  - MUSCULOSKELETAL PAIN [None]
  - MYALGIA [None]
  - PRE-EXISTING CONDITION IMPROVED [None]
